FAERS Safety Report 4615881-6 (Version None)
Quarter: 2005Q1

REPORT INFORMATION
  Report Type: 
  Country: None (occurrence: None)
  Receive Date: 20050317
  Receipt Date: 20050228
  Transmission Date: 20050727
  Serious: Yes (Hospitalization)
  Sender: FDA-Public Use
  Company Number: GXKR2005GB00669

PATIENT
  Age: 17 Year
  Sex: Female

DRUGS (1)
  1. IBUPROFEN [Suspect]
     Dosage: 14 G ONCE/SINGLE, ORAL
     Route: 048

REACTIONS (7)
  - DUODENAL ULCER PERFORATION [None]
  - HYPERTENSION [None]
  - NEUTROPHILIA [None]
  - OVERDOSE [None]
  - PAIN [None]
  - TACHYCARDIA [None]
  - TACHYPNOEA [None]
